FAERS Safety Report 15592410 (Version 1)
Quarter: 2018Q4

REPORT INFORMATION
  Report Type: Spontaneous
  Country: US (occurrence: US)
  Receive Date: 20181106
  Receipt Date: 20181106
  Transmission Date: 20190205
  Serious: Yes (Other)
  Sender: FDA-Public Use
  Company Number: None

PATIENT
  Age: 70 Year
  Sex: Female
  Weight: 95.4 kg

DRUGS (10)
  1. FISH OIL [Concomitant]
     Active Substance: FISH OIL
  2. VALSARTAN AND HYDROCHLOROTHIAZIDE [Concomitant]
     Active Substance: HYDROCHLOROTHIAZIDE\VALSARTAN
  3. RESVERATROL [Concomitant]
     Active Substance: DIETARY SUPPLEMENT\RESVERATROL
  4. SULFASALAZINE EC [Suspect]
     Active Substance: SULFASALAZINE
     Indication: PSORIATIC ARTHROPATHY
     Dosage: ?          QUANTITY:1 TABLET(S);?
     Route: 048
     Dates: start: 20180110, end: 20181103
  5. HYDROCODONE [Concomitant]
     Active Substance: HYDROCODONE
  6. COMBIGAN [Concomitant]
     Active Substance: BRIMONIDINE TARTRATE\TIMOLOL MALEATE
  7. LUTEIN/ZEAXANTHIN [Concomitant]
  8. DEXILANT [Concomitant]
     Active Substance: DEXLANSOPRAZOLE
  9. POTASSIUM HYDROCHLORIDE [Concomitant]
     Active Substance: POTASSIUM CHLORIDE
  10. MELATONIN [Concomitant]
     Active Substance: MELATONIN

REACTIONS (3)
  - Weight increased [None]
  - Alopecia [None]
  - Hypoglycaemia [None]

NARRATIVE: CASE EVENT DATE: 20181011
